FAERS Safety Report 11653900 (Version 3)
Quarter: 2015Q4

REPORT INFORMATION
  Report Type: Spontaneous
  Country: LY (occurrence: LY)
  Receive Date: 20151022
  Receipt Date: 20151119
  Transmission Date: 20160304
  Serious: Yes (Death, Hospitalization)
  Sender: FDA-Public Use
  Company Number: LY-ABBVIE-15P-097-1484294-00

PATIENT
  Age: 5 Day
  Sex: Male
  Weight: 3.75 kg

DRUGS (7)
  1. DEXAMETHASONE. [Concomitant]
     Active Substance: DEXAMETHASONE
     Indication: FLUID REPLACEMENT
     Dosage: 10% DEXAMETHAZONE 9CC/HR
     Route: 042
     Dates: start: 20150914
  2. TRANEX [Concomitant]
     Active Substance: TRANEXAMIC ACID
     Indication: HAEMORRHAGE
     Route: 042
     Dates: start: 20150919
  3. AMPICILLINE [Concomitant]
     Indication: ANTIBIOTIC THERAPY
     Route: 042
     Dates: start: 20150914
  4. SURVANTA [Suspect]
     Active Substance: BERACTANT
     Indication: NEONATAL RESPIRATORY DISTRESS SYNDROME
     Dosage: 4ML/KG
     Route: 065
     Dates: start: 20150919, end: 20150919
  5. GENTAMICIN. [Concomitant]
     Active Substance: GENTAMICIN
     Indication: ANTIBIOTIC THERAPY
     Route: 042
     Dates: start: 20150914
  6. SURVANTA [Suspect]
     Active Substance: BERACTANT
     Dosage: 4ML/KG
     Route: 065
     Dates: start: 20150921, end: 20150921
  7. PHENOBARBITAL. [Concomitant]
     Active Substance: PHENOBARBITAL
     Indication: PROPHYLAXIS
     Route: 042
     Dates: start: 20150919

REACTIONS (3)
  - Pulmonary haemorrhage [Fatal]
  - Hyponatraemia [Fatal]
  - Hypocalcaemia [Fatal]

NARRATIVE: CASE EVENT DATE: 20150919
